FAERS Safety Report 6878355-8 (Version None)
Quarter: 2010Q3

REPORT INFORMATION
  Report Type: 
  Country: None (occurrence: None)
  Receive Date: 20100728
  Receipt Date: 20100716
  Transmission Date: 20110219
  Serious: Yes (Hospitalization)
  Sender: FDA-Public Use
  Company Number: NL-PFIZER INC-2010089480

PATIENT
  Age: 66 Year
  Sex: Male

DRUGS (3)
  1. SUNITINIB MALATE [Suspect]
     Indication: METASTATIC RENAL CELL CARCINOMA
     Dosage: 37.5 MG, UNK
     Dates: start: 20100628
  2. DURAGESIC-100 [Concomitant]
     Dosage: 12.5
     Dates: start: 20100601
  3. TRAMAL [Concomitant]
     Dosage: 50 MG, 3X/DAY
     Dates: start: 20100601

REACTIONS (1)
  - PAIN [None]
